FAERS Safety Report 14100421 (Version 2)
Quarter: 2017Q4

REPORT INFORMATION
  Report Type: Report from Study
  Country: FR (occurrence: FR)
  Receive Date: 20171017
  Receipt Date: 20171019
  Transmission Date: 20180321
  Serious: Yes (Other)
  Sender: FDA-Public Use
  Company Number: FR-B.I. PHARMACEUTICALS,INC./RIDGEFIELD-2017-BI-055451

PATIENT
  Age: 52 Year
  Sex: Female

DRUGS (5)
  1. NINTEDANIB [Suspect]
     Active Substance: NINTEDANIB
     Indication: THYMOMA MALIGNANT
     Route: 048
     Dates: start: 20170803, end: 20170810
  2. DOLIPRANE [Concomitant]
     Active Substance: ACETAMINOPHEN
     Indication: PRODUCT USED FOR UNKNOWN INDICATION
     Route: 065
  3. PRIMPERAN [Concomitant]
     Active Substance: METOCLOPRAMIDE HYDROCHLORIDE
     Indication: PRODUCT USED FOR UNKNOWN INDICATION
     Route: 065
  4. PEMBROLIZUMAB. [Suspect]
     Active Substance: PEMBROLIZUMAB
     Indication: THYMOMA MALIGNANT
     Route: 042
     Dates: start: 20170803, end: 20170803
  5. NINTEDANIB [Suspect]
     Active Substance: NINTEDANIB
     Route: 048

REACTIONS (1)
  - Hepatocellular injury [Recovered/Resolved with Sequelae]

NARRATIVE: CASE EVENT DATE: 20170810
